FAERS Safety Report 21055931 (Version 2)
Quarter: 2022Q3

REPORT INFORMATION
  Report Type: Report from Study
  Country: CO (occurrence: CO)
  Receive Date: 20220708
  Receipt Date: 20220916
  Transmission Date: 20221027
  Serious: Yes (Hospitalization, Other)
  Sender: FDA-Public Use
  Company Number: CO-BRISTOL-MYERS SQUIBB COMPANY-2022-068585

PATIENT
  Age: 62 Year
  Sex: Female
  Weight: 63 kg

DRUGS (1)
  1. ORENCIA [Suspect]
     Active Substance: ABATACEPT
     Indication: Rheumatoid arthritis
     Dosage: 750 MG/ML
     Route: 042
     Dates: start: 20190208

REACTIONS (5)
  - Foot fracture [Recovering/Resolving]
  - Uterine disorder [Recovering/Resolving]
  - Vaginal haemorrhage [Unknown]
  - Vaginal infection [Unknown]
  - Fall [Unknown]

NARRATIVE: CASE EVENT DATE: 20220904
